FAERS Safety Report 11808673 (Version 1)
Quarter: 2015Q4

REPORT INFORMATION
  Report Type: Spontaneous
  Country: US (occurrence: US)
  Receive Date: 20151207
  Receipt Date: 20151207
  Transmission Date: 20160305
  Serious: No
  Sender: FDA-Public Use
  Company Number: US-ROCHE-1551238

PATIENT
  Age: 64 Year
  Sex: Male
  Weight: 81.27 kg

DRUGS (2)
  1. VALIUM [Suspect]
     Active Substance: DIAZEPAM
     Indication: ANXIETY
     Dosage: STARTED YEARS AGO, MOST RECENT DOSE 09/MAR/2015 (EXPIRY DATE JUN/2016)
     Route: 048
  2. VALIUM [Suspect]
     Active Substance: DIAZEPAM
     Dosage: 5 MG SPLIT IN HALF
     Route: 048

REACTIONS (5)
  - Product quality issue [Unknown]
  - Intentional underdose [Unknown]
  - Dysgeusia [Recovered/Resolved]
  - Oral discomfort [Recovered/Resolved]
  - Lip swelling [Not Recovered/Not Resolved]

NARRATIVE: CASE EVENT DATE: 20150309
